FAERS Safety Report 5869449-4 (Version None)
Quarter: 2008Q3

REPORT INFORMATION
  Report Type: 
  Country: None (occurrence: None)
  Receive Date: 20080829
  Receipt Date: 20080814
  Transmission Date: 20090109
  Serious: Yes (Hospitalization)
  Sender: FDA-Public Use
  Company Number: 2008S1000238

PATIENT
  Age: 28 Year
  Sex: Male
  Weight: 123.3 kg

DRUGS (1)
  1. CUBICIN [Suspect]
     Indication: WOUND INFECTION
     Dosage: 4 MG/KG;Q24H

REACTIONS (3)
  - ALVEOLITIS ALLERGIC [None]
  - EOSINOPHILIC PNEUMONIA [None]
  - PULMONARY EMBOLISM [None]
